FAERS Safety Report 16995723 (Version 2)
Quarter: 2019Q4

REPORT INFORMATION
  Report Type: Spontaneous
  Country: IT (occurrence: IT)
  Receive Date: 20191105
  Receipt Date: 20191115
  Transmission Date: 20200122
  Serious: Yes (Death, Other)
  Sender: FDA-Public Use
  Company Number: IT-TAKEDA-2019TUS062571

PATIENT
  Age: 70 Year
  Sex: Male

DRUGS (1)
  1. ICLUSIG [Suspect]
     Active Substance: PONATINIB
     Indication: CHRONIC MYELOID LEUKAEMIA
     Dosage: 45 MILLIGRAM, QD
     Route: 048
     Dates: start: 20180426, end: 20190825

REACTIONS (1)
  - Prostate cancer recurrent [Fatal]

NARRATIVE: CASE EVENT DATE: 20190415
